FAERS Safety Report 11722661 (Version 1)
Quarter: 2015Q4

REPORT INFORMATION
  Report Type: Spontaneous
  Country: US (occurrence: US)
  Receive Date: 20151111
  Receipt Date: 20151111
  Transmission Date: 20160304
  Serious: No
  Sender: FDA-Public Use
  Company Number: US-PFIZER INC-2015368944

PATIENT
  Age: 56 Year
  Sex: Female
  Weight: 82 kg

DRUGS (4)
  1. LYRICA [Suspect]
     Active Substance: PREGABALIN
     Indication: NEURALGIA
     Dosage: 50 MG, 4X/DAY
     Dates: start: 201510
  2. LYRICA [Suspect]
     Active Substance: PREGABALIN
     Dosage: 400 MG, UNK
     Dates: start: 201510
  3. LYRICA [Suspect]
     Active Substance: PREGABALIN
     Dosage: 100 MG, UNK
     Dates: start: 201510
  4. LYRICA [Suspect]
     Active Substance: PREGABALIN
     Dosage: 75 MG, 4X/DAY
     Dates: start: 201510

REACTIONS (2)
  - Somnolence [Unknown]
  - Pain [Not Recovered/Not Resolved]
